FAERS Safety Report 5318099-7 (Version None)
Quarter: 2007Q2

REPORT INFORMATION
  Report Type: 
  Country: None (occurrence: None)
  Receive Date: 20070507
  Receipt Date: 20070426
  Transmission Date: 20071010
  Serious: Yes (Other)
  Sender: FDA-Public Use
  Company Number: BR-JNJFOC-20070406458

PATIENT
  Age: 17 Year
  Sex: Male
  Weight: 65 kg

DRUGS (1)
  1. HALDOL [Suspect]
     Indication: SUICIDE ATTEMPT
     Dosage: 40 TABLETS TAKEN AT ONE TIME
     Route: 048

REACTIONS (4)
  - BLOOD PRESSURE DECREASED [None]
  - GENERALISED OEDEMA [None]
  - OVERDOSE [None]
  - SOMNOLENCE [None]
